FAERS Safety Report 4430952-5 (Version None)
Quarter: 2004Q3

REPORT INFORMATION
  Report Type: 
  Country: None (occurrence: None)
  Receive Date: 20040824
  Receipt Date: 20040812
  Transmission Date: 20050211
  Serious: Yes (Death, Other)
  Sender: FDA-Public Use
  Company Number: GB-JNJFOC-20040804307

PATIENT
  Age: 54 Year
  Sex: Male

DRUGS (6)
  1. RETEPLASE [Suspect]
     Indication: MYOCARDIAL INFARCTION
     Route: 042
  2. ASPIRIN [Concomitant]
     Dates: start: 20040624
  3. ENOXAPARIN SODIUM [Concomitant]
     Dates: start: 20040624
  4. ATENOLOL [Concomitant]
     Dates: start: 20040624
  5. INDOMETHACIN 25MG CAP [Concomitant]
     Dates: start: 20040625
  6. ISOSORBIDE [Concomitant]
     Dates: start: 20040624

REACTIONS (5)
  - ABDOMINAL PAIN [None]
  - CONVULSION [None]
  - HYPERSENSITIVITY [None]
  - HYPOTENSION [None]
  - PERICARDIAL EFFUSION [None]
